FAERS Safety Report 15866184 (Version 1)
Quarter: 2019Q1

REPORT INFORMATION
  Report Type: Spontaneous
  Country: US (occurrence: US)
  Receive Date: 20190102
  Receipt Date: 20190102
  Transmission Date: 20190417
  Serious: No
  Sender: FDA-Public Use
  Company Number: None

PATIENT
  Age: 49 Year

DRUGS (1)
  1. ENBREL [Suspect]
     Active Substance: ETANERCEPT
     Indication: RAYNAUD^S PHENOMENON
     Route: 058
     Dates: start: 20181231

REACTIONS (1)
  - Off label use [None]

NARRATIVE: CASE EVENT DATE: 20181231
